FAERS Safety Report 15081393 (Version 1)
Quarter: 2018Q2

REPORT INFORMATION
  Report Type: Spontaneous
  Country: US (occurrence: US)
  Receive Date: 20180607
  Receipt Date: 20180607
  Transmission Date: 20180711
  Serious: Yes (Life-Threatening, Hospitalization)
  Sender: FDA-Public Use
  Company Number: None

PATIENT
  Age: 55 Year
  Sex: Female
  Weight: 84.15 kg

DRUGS (6)
  1. DEPO-MEDROL [Suspect]
     Active Substance: METHYLPREDNISOLONE ACETATE
     Indication: ARTHRITIS
     Route: 008
     Dates: start: 20180601, end: 20180601
  2. DICLOFENAC GEL 1% [Concomitant]
     Active Substance: DICLOFENAC
  3. GABAPENTIN. [Concomitant]
     Active Substance: GABAPENTIN
  4. ISOVUE 200 [Suspect]
     Active Substance: IOPAMIDOL
     Dates: start: 20180601, end: 20180601
  5. NAPROSYN [Concomitant]
     Active Substance: NAPROXEN
  6. FLEXERIL [Concomitant]
     Active Substance: CYCLOBENZAPRINE HYDROCHLORIDE

REACTIONS (4)
  - Angioedema [None]
  - Pain [None]
  - Anaphylactic shock [None]
  - Wheezing [None]

NARRATIVE: CASE EVENT DATE: 20180603
